FAERS Safety Report 4845269-4 (Version None)
Quarter: 2005Q4

REPORT INFORMATION
  Report Type: 
  Country: None (occurrence: None)
  Receive Date: 20051205
  Receipt Date: 20051129
  Transmission Date: 20060501
  Serious: Yes (Hospitalization)
  Sender: FDA-Public Use
  Company Number: FR-BRISTOL-MYERS SQUIBB COMPANY-13198221

PATIENT
  Age: 73 Year
  Sex: Male

DRUGS (5)
  1. SUSTIVA [Suspect]
     Route: 048
  2. ELISOR TABS [Suspect]
     Route: 048
  3. COMBIVIR [Suspect]
  4. AMLOR [Suspect]
  5. ASPEGIC 325 [Suspect]

REACTIONS (1)
  - MYOCARDIAL INFARCTION [None]
